FAERS Safety Report 12310391 (Version 1)
Quarter: 2016Q2

REPORT INFORMATION
  Report Type: Spontaneous
  Country: US (occurrence: None)
  Receive Date: 20160426
  Receipt Date: 20160426
  Transmission Date: 20160815
  Serious: Yes (Other)
  Sender: FDA-Public Use
  Company Number: None

PATIENT
  Age: 71 Year
  Sex: Female
  Weight: 52.16 kg

DRUGS (9)
  1. LEVAQUIN [Suspect]
     Active Substance: LEVOFLOXACIN
  2. ARIMIDEX [Concomitant]
     Active Substance: ANASTROZOLE
  3. LXAPRO [Concomitant]
  4. ATORVASTATIN [Suspect]
     Active Substance: ATORVASTATIN
     Indication: BLOOD CHOLESTEROL INCREASED
     Route: 048
     Dates: start: 20160408, end: 20160422
  5. BIOTIN [Concomitant]
     Active Substance: BIOTIN
  6. D [Concomitant]
  7. FOLATE [Concomitant]
     Active Substance: FOLATE SODIUM
  8. C [Concomitant]
  9. E [Concomitant]

REACTIONS (2)
  - Tendon pain [None]
  - Arthralgia [None]

NARRATIVE: CASE EVENT DATE: 20160420
